FAERS Safety Report 9670201 (Version 1)
Quarter: 2013Q4

REPORT INFORMATION
  Report Type: Spontaneous
  Country: US (occurrence: None)
  Receive Date: 20131104
  Receipt Date: 20131104
  Transmission Date: 20140711
  Serious: Yes (Hospitalization, Other)
  Sender: FDA-Public Use
  Company Number: 1271391

PATIENT
  Age: 47 Year
  Sex: Female

DRUGS (4)
  1. METOCLOPRAMIDE [Suspect]
     Indication: GASTROENTERITIS
  2. ONDANSETRON [Suspect]
     Indication: GASTROENTERITIS
  3. CLOZAPINE [Suspect]
     Indication: SCHIZOPHRENIA
     Dosage: 100 MG ORALLY AT NIGHT PRIOR TO ABRUPT WITHDRAWL
     Route: 048
  4. CITALOPRAM [Suspect]

REACTIONS (5)
  - Agitation [None]
  - Salivary hypersecretion [None]
  - Muscle spasticity [None]
  - Serotonin syndrome [None]
  - Hyperreflexia [None]
